FAERS Safety Report 10995872 (Version 1)
Quarter: 2015Q2

REPORT INFORMATION
  Report Type: Spontaneous
  Country: IN (occurrence: IN)
  Receive Date: 20150407
  Receipt Date: 20150407
  Transmission Date: 20150821
  Serious: Yes (Other)
  Sender: FDA-Public Use
  Company Number: IN-009507513-1504IND002380

PATIENT

DRUGS (2)
  1. JANUVIA [Suspect]
     Active Substance: SITAGLIPTIN PHOSPHATE
     Indication: DIABETES MELLITUS
     Dosage: 100 MG, (ONE IN THE MORNING AND ONE IN THE EVENING)
     Route: 048
  2. JANUVIA [Suspect]
     Active Substance: SITAGLIPTIN PHOSPHATE
     Dosage: 1/2 TABLET IN THE MORNING AND THE OTHER HALF IN THE NIGHT
     Route: 048

REACTIONS (5)
  - Wrong technique in drug usage process [Unknown]
  - Drug administration error [Unknown]
  - Incorrect dose administered [Unknown]
  - Coma [Unknown]
  - Inappropriate schedule of drug administration [Unknown]
